FAERS Safety Report 4596946-4 (Version None)
Quarter: 2005Q1

REPORT INFORMATION
  Report Type: 
  Country: None (occurrence: None)
  Receive Date: 20050228
  Receipt Date: 20050221
  Transmission Date: 20050727
  Serious: Yes (Other)
  Sender: FDA-Public Use
  Company Number: 2004097469

PATIENT
  Age: 36 Year
  Sex: Female
  Weight: 68.0396 kg

DRUGS (5)
  1. DEPO-PROVERA [Suspect]
     Indication: CONTRACEPTION
     Dosage: 150 MG (150 MG, EVERY 3  MONTHS/SINGLE INJECTION), INTRAMUSCULAR
     Route: 030
     Dates: start: 20030423, end: 20030423
  2. LEVOTHYROXINE SODIUM [Concomitant]
  3. TRETINOIN [Concomitant]
  4. AZELAIC ACID (AZELAIC ACID) [Concomitant]
  5. RABEPRAZOLE SODIUM [Concomitant]

REACTIONS (1)
  - OSTEOPENIA [None]
